FAERS Safety Report 24369304 (Version 1)
Quarter: 2024Q3

REPORT INFORMATION
  Report Type: Report from Study
  Country: US (occurrence: US)
  Receive Date: 20240927
  Receipt Date: 20240927
  Transmission Date: 20241016
  Serious: No
  Sender: ROCHE
  Company Number: US-ROCHE-3347336

PATIENT
  Age: 51 Year
  Sex: Female

DRUGS (11)
  1. LUCENTIS [Suspect]
     Active Substance: RANIBIZUMAB
     Indication: Diabetic retinal oedema
     Route: 065
  2. LUCENTIS [Suspect]
     Active Substance: RANIBIZUMAB
     Route: 065
  3. AVASTIN [Suspect]
     Active Substance: BEVACIZUMAB
     Indication: Diabetic retinal oedema
     Route: 065
  4. GABAPENTIN [Concomitant]
     Active Substance: GABAPENTIN
     Dosage: L TABLET 1 QHS BY MOUTH
     Route: 048
  5. METFORMIN HYDROCHLORIDE [Concomitant]
     Active Substance: METFORMIN HYDROCHLORIDE
     Dosage: ORAL TABLET  1 BID BY MOUTH
  6. PANTOPRAZOLE SODIUM [Concomitant]
     Active Substance: PANTOPRAZOLE SODIUM
     Dosage: 40 MG (AS PANTOPRAZOLE SODIUM SESQUIHYDRATE 45.1 MG) DELAYED RELEASE ORAL?TABLET 1 QDAY BY MOUTH.
  7. AMLODIPINE [Concomitant]
     Active Substance: AMLODIPINE BESYLATE
     Dosage: AS AMILODIPINE BESYLATE)
  8. TELMISARTAN [Concomitant]
     Active Substance: TELMISARTAN
     Dosage: ORAL TABLET 1 QDAY BY MOUTH
  9. ATORVASTATIN CALCIUM [Concomitant]
     Active Substance: ATORVASTATIN CALCIUM
     Dosage: ORAL TABLET 1 QDAY BY MOUTH
  10. LISINOPRIL [Concomitant]
     Active Substance: LISINOPRIL
     Dosage: ORAL TABLET 1 QDAY BY MOUTH
  11. CIMETIDINE [Concomitant]
     Active Substance: CIMETIDINE
     Dosage: ORAL TABLET, FILM COATED (CIMETIDINE) 1 BID BY MOUTH.
     Route: 048

REACTIONS (2)
  - Off label use [Unknown]
  - No adverse event [Unknown]
